FAERS Safety Report 17710143 (Version 1)
Quarter: 2020Q2

REPORT INFORMATION
  Report Type: Spontaneous
  Country: US (occurrence: US)
  Receive Date: 20200423
  Receipt Date: 20200423
  Transmission Date: 20200714
  Serious: Yes (Hospitalization)
  Sender: FDA-Public Use
  Company Number: None

PATIENT
  Age: 39 Year
  Sex: Male
  Weight: 94.8 kg

DRUGS (1)
  1. NIVOLUMAB [Suspect]
     Active Substance: NIVOLUMAB

REACTIONS (7)
  - Cough [None]
  - Vomiting [None]
  - Drug ineffective [None]
  - Diarrhoea [None]
  - Headache [None]
  - Upper respiratory tract infection [None]
  - Insomnia [None]

NARRATIVE: CASE EVENT DATE: 20190902
